FAERS Safety Report 24905600 (Version 1)
Quarter: 2025Q1

REPORT INFORMATION
  Report Type: Report from Study
  Country: US (occurrence: US)
  Receive Date: 20250130
  Receipt Date: 20250130
  Transmission Date: 20250408
  Serious: No
  Sender: HRA PHARMA
  Company Number: US-ORG100014127-2024000082

PATIENT
  Age: 8 Year
  Sex: Male

DRUGS (10)
  1. METOPIRONE [Suspect]
     Active Substance: METYRAPONE
     Indication: Primary adrenal insufficiency
     Dosage: 03 CAPSULES (750G) IN TOTAL PER DAY AS ONE DOSE
     Route: 048
     Dates: start: 20231107
  2. Acetaminophen SUS 160/5ML [Concomitant]
     Indication: Product used for unknown indication
  3. CETIRIZINE SOL 1MG/ML [Concomitant]
     Indication: Product used for unknown indication
  4. CYPROHEPTAD SYP 2MG/5M [Concomitant]
     Indication: Product used for unknown indication
  5. LISINOPRIL [Concomitant]
     Active Substance: LISINOPRIL
     Indication: Product used for unknown indication
  6. METOCLOPRAM SOL 10/10ML; [Concomitant]
     Indication: Product used for unknown indication
  7. Omeprazole CAP 40 mg [Concomitant]
     Indication: Product used for unknown indication
  8. RITALIN LA CAP 20MG [Concomitant]
     Indication: Product used for unknown indication
  9. SODIUM BICAR TAB 10GR; [Concomitant]
     Indication: Product used for unknown indication
  10. TACROLIMUS [Concomitant]
     Active Substance: TACROLIMUS
     Indication: Product used for unknown indication

REACTIONS (1)
  - Off label use [Not Recovered/Not Resolved]

NARRATIVE: CASE EVENT DATE: 20231107
